FAERS Safety Report 7039965-0 (Version None)
Quarter: 2010Q4

REPORT INFORMATION
  Report Type: 
  Country: None (occurrence: None)
  Receive Date: 20101012
  Receipt Date: 20100930
  Transmission Date: 20110411
  Serious: Yes (Hospitalization)
  Sender: FDA-Public Use
  Company Number: DE-ROCHE-730565

PATIENT
  Sex: Female
  Weight: 86 kg

DRUGS (4)
  1. TRASTUZUMAB [Suspect]
     Indication: BREAST CANCER
     Dosage: LOADING DOSE: 8 MG/KG, FORM: VIALS
     Route: 042
  2. TRASTUZUMAB [Suspect]
     Dosage: MAINTENANCE DOSE: 4 MG/KG, TOTAL DOSE: 516 MG
     Route: 042
     Dates: start: 20100910
  3. DOCETAXEL [Suspect]
     Indication: BREAST CANCER
     Dosage: DOSE: 150 MG, FORM: VIALS,
     Route: 042
     Dates: start: 20100910
  4. CARBOPLATIN [Suspect]
     Indication: BREAST CANCER
     Dosage: DOSE LEVEL: 4 AUC, TOTAL DOSE: 712.9 MG, FORM: VIALS
     Route: 042
     Dates: start: 20100910

REACTIONS (1)
  - DEEP VEIN THROMBOSIS [None]
